FAERS Safety Report 5746601-X (Version None)
Quarter: 2008Q2

REPORT INFORMATION
  Report Type: 
  Country: None (occurrence: None)
  Receive Date: 20080520
  Receipt Date: 20080508
  Transmission Date: 20081010
  Serious: Yes (Hospitalization)
  Sender: FDA-Public Use
  Company Number: 2007JP002215

PATIENT
  Age: 71 Year
  Sex: Female
  Weight: 46 kg

DRUGS (17)
  1. PROGRAF [Suspect]
     Indication: RHEUMATOID ARTHRITIS
     Dosage: 1 MG, UID/QD, ORAL; 2 MG, UID/QD, ORAL; 3 MG, UID/QD, ORAL
     Route: 048
     Dates: start: 20070117, end: 20070130
  2. PROGRAF [Suspect]
     Indication: RHEUMATOID ARTHRITIS
     Dosage: 1 MG, UID/QD, ORAL; 2 MG, UID/QD, ORAL; 3 MG, UID/QD, ORAL
     Route: 048
     Dates: start: 20070131, end: 20070327
  3. PROGRAF [Suspect]
     Indication: RHEUMATOID ARTHRITIS
     Dosage: 1 MG, UID/QD, ORAL; 2 MG, UID/QD, ORAL; 3 MG, UID/QD, ORAL
     Route: 048
     Dates: start: 20070328, end: 20070423
  4. NEO-AMUNOLL(NON-PYRINE COLD PREPARATION) FORMULATION UNKNOWN [Suspect]
     Dosage: 1 G, TID
     Dates: start: 20070414, end: 20070423
  5. HUSTAZOL(CLOPERASTINE HYDROCHLORIDE) FORMULATION UNKNOWN [Suspect]
     Dosage: 10 MG, TID
     Dates: start: 20070414, end: 20070423
  6. TRANSAMIN(TRANEXAMIC ACID) FORMULATION UNKNOWN [Suspect]
     Dosage: 250 MG, TID
     Dates: start: 20070414, end: 20070423
  7. AZULFIDINE EN-TABS [Concomitant]
  8. SULINDAC [Concomitant]
  9. MERALLURIDE (MERALLURIDE) [Concomitant]
  10. TOCOPHERYL ACETATE (TOCOPHERYL ACETATE) [Concomitant]
  11. MUCOSTA (REBAMIPIDE) [Concomitant]
  12. CEPHADOL (DIFENIDOL HYDROCHLORIDE) [Concomitant]
  13. TRICHLORMETHIAZIDE [Concomitant]
  14. ASPIRIN [Concomitant]
  15. VOLTAREN [Concomitant]
  16. GOODMIN (BROTIZOLAM) [Concomitant]
  17. EISHI-KA-JUTSU-BU-TO [Concomitant]

REACTIONS (2)
  - EOSINOPHILIC PNEUMONIA [None]
  - URTICARIA [None]
